FAERS Safety Report 4666078-5 (Version None)
Quarter: 2005Q2

REPORT INFORMATION
  Report Type: 
  Country: None (occurrence: None)
  Receive Date: 20050519
  Receipt Date: 20050517
  Transmission Date: 20051028
  Serious: Yes (Other)
  Sender: FDA-Public Use
  Company Number: US-GLAXOSMITHKLINE-A0558972A

PATIENT
  Sex: Female

DRUGS (5)
  1. AVANDAMET [Suspect]
     Indication: DRUG USE FOR UNKNOWN INDICATION
     Dosage: 1TAB PER DAY
     Route: 048
     Dates: start: 20050101
  2. METOPROLOL [Concomitant]
  3. GLIPIZIDE [Concomitant]
  4. BENAZEPRIL HCL [Concomitant]
  5. DOXAZOSIN [Concomitant]

REACTIONS (4)
  - ALOPECIA [None]
  - CHOKING [None]
  - DIZZINESS [None]
  - NAUSEA [None]
